FAERS Safety Report 6294826-X (Version None)
Quarter: 2009Q3

REPORT INFORMATION
  Report Type: 
  Country: None (occurrence: None)
  Receive Date: 20090803
  Receipt Date: 20090720
  Transmission Date: 20100115
  Serious: Yes (Hospitalization)
  Sender: FDA-Public Use
  Company Number: PHHY2009AU30076

PATIENT

DRUGS (1)
  1. METHYLPHENIDATE HCL [Suspect]
     Indication: DEPRESSION

REACTIONS (1)
  - MANIA [None]
